FAERS Safety Report 7957289-1 (Version None)
Quarter: 2011Q4

REPORT INFORMATION
  Report Type: 
  Country: None (occurrence: None)
  Receive Date: 20111205
  Receipt Date: 20111123
  Transmission Date: 20120403
  Serious: Yes (Other)
  Sender: FDA-Public Use
  Company Number: US-ELI_LILLY_AND_COMPANY-US201103001424

PATIENT
  Sex: Female
  Weight: 62.585 kg

DRUGS (1)
  1. FORTEO [Suspect]
     Indication: OSTEOPOROSIS
     Dosage: 20 UG, QD

REACTIONS (4)
  - INCREASED TENDENCY TO BRUISE [None]
  - SPINAL COMPRESSION FRACTURE [None]
  - FATIGUE [None]
  - INJECTION SITE HAEMATOMA [None]
